FAERS Safety Report 18570451 (Version 1)
Quarter: 2020Q4

REPORT INFORMATION
  Report Type: Spontaneous
  Country: US (occurrence: US)
  Receive Date: 20201202
  Receipt Date: 20201202
  Transmission Date: 20210114
  Serious: No
  Sender: FDA-Public Use
  Company Number: US-PFIZER INC-2020471441

PATIENT
  Age: 58 Year
  Sex: Male
  Weight: 92.99 kg

DRUGS (1)
  1. SILDENAFIL CITRATE. [Suspect]
     Active Substance: SILDENAFIL CITRATE
     Indication: ERECTILE DYSFUNCTION
     Dosage: 100 MG (WATER BY MOUTH WHENEVER AVAILABLE FOR SIGNIFICANT OTHER WHEN SHE SAY THAT^S WHAT YOU DO)
     Route: 048
     Dates: start: 2019, end: 202010

REACTIONS (1)
  - Therapeutic product effect incomplete [Not Recovered/Not Resolved]
